FAERS Safety Report 8506320-3 (Version None)
Quarter: 2012Q3

REPORT INFORMATION
  Report Type: 
  Country: None (occurrence: None)
  Receive Date: 20120712
  Receipt Date: 20120626
  Transmission Date: 20120928
  Serious: No
  Sender: FDA-Public Use
  Company Number: US-ASTRAZENECA-2012SE43348

PATIENT
  Age: 61 Year
  Sex: Female

DRUGS (2)
  1. TRILIPIX [Concomitant]
  2. CRESTOR [Suspect]
     Route: 048
     Dates: end: 20120530

REACTIONS (1)
  - ENZYME ACTIVITY INCREASED [None]
